FAERS Safety Report 6739547-1 (Version None)
Quarter: 2010Q2

REPORT INFORMATION
  Report Type: 
  Country: None (occurrence: None)
  Receive Date: 20100521
  Receipt Date: 20100507
  Transmission Date: 20101027
  Serious: Yes (Hospitalization)
  Sender: FDA-Public Use
  Company Number: 011503

PATIENT
  Sex: Female

DRUGS (2)
  1. LACOSAMIDE [Suspect]
     Dosage: (300 MG BID), (200 MG BID)
  2. TEGRETOL [Concomitant]

REACTIONS (1)
  - HEAD TITUBATION [None]
